FAERS Safety Report 21647928 (Version 1)
Quarter: 2022Q4

REPORT INFORMATION
  Report Type: Spontaneous
  Country: US (occurrence: US)
  Receive Date: 20221128
  Receipt Date: 20221128
  Transmission Date: 20230113
  Serious: Yes (Hospitalization, Other)
  Sender: FDA-Public Use
  Company Number: US-BRISTOL-MYERS SQUIBB COMPANY-2022-143427

PATIENT
  Age: 74 Year
  Sex: Male
  Weight: 95.88 kg

DRUGS (7)
  1. ELIQUIS [Suspect]
     Active Substance: APIXABAN
     Indication: Embolism venous
     Dosage: FREQ: TWICE A DAY, EVERY 12 HOURS AT NOON AND MIDNIGHT
     Route: 048
     Dates: start: 2022
  2. OMEPRAZOLE [Concomitant]
     Active Substance: OMEPRAZOLE
     Indication: Product used for unknown indication
     Route: 065
  3. METFORMIN [Concomitant]
     Active Substance: METFORMIN HYDROCHLORIDE
     Indication: Diabetes mellitus
     Route: 065
  4. LOSARTAN POTASSIUM [Concomitant]
     Active Substance: LOSARTAN POTASSIUM
     Indication: Product used for unknown indication
     Route: 065
  5. METOPROLOL [Concomitant]
     Active Substance: METOPROLOL
     Indication: Product used for unknown indication
     Dosage: FREQUENCY- DAILY
     Route: 065
  6. ATENOLOL [Concomitant]
     Active Substance: ATENOLOL
     Indication: Product used for unknown indication
     Route: 065
  7. HYDROCODONE [Concomitant]
     Active Substance: HYDROCODONE
     Indication: Injury
     Dosage: HE TAKES IT ONLY WHEN HE REALLY NEEDS THEM INSTEAD OF EVERY 4 HOURS, STATES HE CAN^T SURVIVE WITHOUT
     Route: 065

REACTIONS (6)
  - Product dose omission issue [Unknown]
  - Cardiopulmonary failure [Unknown]
  - Renal failure [Unknown]
  - Malaise [Unknown]
  - Weight decreased [Unknown]
  - Abdominal distension [Unknown]

NARRATIVE: CASE EVENT DATE: 20220101
